FAERS Safety Report 16351739 (Version 1)
Quarter: 2019Q3

REPORT INFORMATION
  Report Type: Spontaneous
  Country: US (occurrence: US)
  Receive Date: 20190523
  Receipt Date: 20190523
  Transmission Date: 20191004
  Serious: Yes (Death)
  Sender: FDA-Public Use
  Company Number: None

PATIENT
  Age: 29 Year
  Weight: 54 kg

DRUGS (9)
  1. CLORPHENIRAMINE MALATE [Concomitant]
  2. SERTRALINE HCL [Suspect]
     Active Substance: SERTRALINE HYDROCHLORIDE
     Indication: POST-TRAUMATIC STRESS DISORDER
     Dosage: ?          QUANTITY:1 TABLET(S);?
     Route: 048
     Dates: start: 20180917, end: 20181213
  3. SPIRONOLACTONE. [Concomitant]
     Active Substance: SPIRONOLACTONE
  4. ESTRADIOL. [Suspect]
     Active Substance: ESTRADIOL
     Indication: GENDER REASSIGNMENT THERAPY
     Dosage: ?          QUANTITY:1 TABLET(S);?
     Route: 048
     Dates: start: 20180917, end: 20181213
  5. ALBUTEROL. [Concomitant]
     Active Substance: ALBUTEROL
  6. HEMP OIL (EXTERNAL ) [Concomitant]
  7. PROBIOTICS [Concomitant]
     Active Substance: PROBIOTICS NOS
  8. SERTRALINE HCL [Suspect]
     Active Substance: SERTRALINE HYDROCHLORIDE
     Indication: DEPRESSION
     Dosage: ?          QUANTITY:1 TABLET(S);?
     Route: 048
     Dates: start: 20180917, end: 20181213
  9. FLUTICASONE PROPIONATE. [Concomitant]
     Active Substance: FLUTICASONE PROPIONATE

REACTIONS (1)
  - Completed suicide [None]

NARRATIVE: CASE EVENT DATE: 20181203
